FAERS Safety Report 24987113 (Version 1)
Quarter: 2025Q1

REPORT INFORMATION
  Report Type: Spontaneous
  Country: US (occurrence: US)
  Receive Date: 20250219
  Receipt Date: 20250219
  Transmission Date: 20250408
  Serious: No
  Sender: ABBVIE
  Company Number: US-ABBVIE-6133919

PATIENT
  Sex: Male

DRUGS (1)
  1. BYSTOLIC [Suspect]
     Active Substance: NEBIVOLOL HYDROCHLORIDE
     Indication: Product used for unknown indication
     Route: 048

REACTIONS (5)
  - Fatigue [Recovering/Resolving]
  - Anxiety [Recovering/Resolving]
  - Unevaluable event [Not Recovered/Not Resolved]
  - Heart rate abnormal [Recovering/Resolving]
  - Blood pressure abnormal [Recovering/Resolving]
